FAERS Safety Report 8523272-0 (Version None)
Quarter: 2012Q3

REPORT INFORMATION
  Report Type: 
  Country: None (occurrence: None)
  Receive Date: 20120709
  Receipt Date: 20120628
  Transmission Date: 20120928
  Serious: Yes (Life-Threatening)
  Sender: FDA-Public Use
  Company Number: 2011084018

PATIENT
  Age: 65 Year
  Sex: Female

DRUGS (7)
  1. DALTEPARIN SODIUM [Suspect]
     Indication: LUNG NEOPLASM MALIGNANT
     Dosage: 5000 IU, 1X/DAY, SUBCUTANEOUS
     Route: 058
     Dates: start: 20110405, end: 20110415
  2. FOLIC ACID [Concomitant]
  3. LANSOPRAZOLE [Concomitant]
  4. PEMETREXED [Suspect]
     Dosage: 875 MG, 1X/DAY, INTRAVENOUS
     Route: 042
     Dates: start: 20110405, end: 20110405
  5. CISPLATIN [Suspect]
     Dosage: 132 MG, 1X/DAY, INTRAVENOUS
     Route: 042
     Dates: start: 20110405, end: 20110405
  6. CIPROFLOXACIN [Concomitant]
  7. DOMPERIDONE (DOMEPERIDONE) [Concomitant]

REACTIONS (4)
  - PYREXIA [None]
  - HYPOTENSION [None]
  - BONE MARROW FAILURE [None]
  - ANAEMIA [None]
